FAERS Safety Report 4675647-8 (Version None)
Quarter: 2005Q2

REPORT INFORMATION
  Report Type: 
  Country: None (occurrence: None)
  Receive Date: 20050527
  Receipt Date: 20050523
  Transmission Date: 20051028
  Serious: Yes (Hospitalization)
  Sender: FDA-Public Use
  Company Number: FR-BRISTOL-MYERS SQUIBB COMPANY-12979845

PATIENT
  Age: 35 Year
  Sex: Male
  Weight: 64 kg

DRUGS (2)
  1. SUSTIVA [Suspect]
     Route: 048
     Dates: start: 20050412, end: 20050421
  2. COMBIVIR [Concomitant]
     Dates: start: 20050412

REACTIONS (4)
  - ALVEOLITIS ALLERGIC [None]
  - HILAR LYMPHADENOPATHY [None]
  - PYREXIA [None]
  - RASH ERYTHEMATOUS [None]
